FAERS Safety Report 4889873-6 (Version None)
Quarter: 2006Q1

REPORT INFORMATION
  Report Type: 
  Country: None (occurrence: None)
  Receive Date: 20060120
  Receipt Date: 20060111
  Transmission Date: 20060701
  Serious: Yes (Hospitalization)
  Sender: FDA-Public Use
  Company Number: HQWYE310312JAN06

PATIENT
  Age: 56 Year
  Sex: Female

DRUGS (10)
  1. RAPAMUNE [Suspect]
  2. INSULIN LISPRO (INSULIN LISPRO) [Concomitant]
  3. SODIUM BICARBONATE IN PLASTIC CONTAINER [Concomitant]
  4. FERROUS SULFATE TAB [Concomitant]
  5. PREDNISONE [Concomitant]
  6. FOLIC ACID [Concomitant]
  7. TEMAZEPAM [Concomitant]
  8. CALCITRIOL [Concomitant]
  9. ATENOLOL [Concomitant]
  10. RANITIDINE [Concomitant]

REACTIONS (7)
  - ALOPECIA [None]
  - CELLULITIS [None]
  - ENTEROBACTER INFECTION [None]
  - PRURITUS GENERALISED [None]
  - RASH MACULO-PAPULAR [None]
  - SKIN ULCER [None]
  - STAPHYLOCOCCAL INFECTION [None]
